FAERS Safety Report 6969729-5 (Version None)
Quarter: 2010Q3

REPORT INFORMATION
  Report Type: 
  Country: None (occurrence: None)
  Receive Date: 20100908
  Receipt Date: 20100830
  Transmission Date: 20110219
  Serious: Yes (Hospitalization)
  Sender: FDA-Public Use
  Company Number: US-BIOGENIDEC-2010BI029972

PATIENT
  Age: 71 Year
  Sex: Female
  Weight: 67 kg

DRUGS (5)
  1. AVONEX [Suspect]
     Indication: MULTIPLE SCLEROSIS
     Route: 030
     Dates: start: 20030626
  2. NEURONTIN [Concomitant]
     Indication: HYPOAESTHESIA
  3. DILANTIN [Concomitant]
     Indication: CONVULSION
     Dates: start: 19750101
  4. CHOLESTEROL MEDICATION (NOS) [Concomitant]
     Indication: BLOOD CHOLESTEROL INCREASED
  5. HEART MEDICATION (NOS) [Concomitant]
     Indication: HEART VALVE INCOMPETENCE

REACTIONS (2)
  - HYPOAESTHESIA [None]
  - PERIPHERAL COLDNESS [None]
